FAERS Safety Report 23658338 (Version 2)
Quarter: 2024Q1

REPORT INFORMATION
  Report Type: Spontaneous
  Country: US (occurrence: US)
  Receive Date: 20240321
  Receipt Date: 20240327
  Transmission Date: 20240409
  Serious: Yes (Hospitalization, Other)
  Sender: FDA-Public Use
  Company Number: US-BIOVITRUM-2024-US-004404

PATIENT
  Age: 66 Year
  Sex: Female

DRUGS (2)
  1. VONJO [Suspect]
     Active Substance: PACRITINIB
     Indication: Essential thrombocythaemia
     Dosage: TWICE DAILY
     Route: 048
     Dates: start: 20240115
  2. VONJO [Suspect]
     Active Substance: PACRITINIB
     Indication: Polycythaemia

REACTIONS (5)
  - Off label use [Recovered/Resolved]
  - Nausea [Unknown]
  - Respiratory tract infection viral [Unknown]
  - Pneumonia [Unknown]
  - Atrial fibrillation [Unknown]

NARRATIVE: CASE EVENT DATE: 20240115
